FAERS Safety Report 15477000 (Version 1)
Quarter: 2018Q4

REPORT INFORMATION
  Report Type: Spontaneous
  Country: US (occurrence: US)
  Receive Date: 20181001
  Receipt Date: 20181001
  Transmission Date: 20190205
  Serious: Yes (Hospitalization)
  Sender: FDA-Public Use
  Company Number: None

PATIENT
  Age: 50 Year
  Sex: Female

DRUGS (41)
  1. BUPROPN [Concomitant]
  2. HYDROXCHLOR [Concomitant]
  3. LINEZOLID. [Concomitant]
     Active Substance: LINEZOLID
  4. MOVANTIK [Concomitant]
     Active Substance: NALOXEGOL OXALATE
  5. TAMSULOSIN [Concomitant]
     Active Substance: TAMSULOSIN
  6. TRAVATAN [Concomitant]
     Active Substance: TRAVOPROST
  7. ADVAIR HFA [Concomitant]
     Active Substance: FLUTICASONE PROPIONATE\SALMETEROL XINAFOATE
  8. COLCHICINE. [Concomitant]
     Active Substance: COLCHICINE
  9. DOXYCYCL [Concomitant]
  10. ISOSORB [Concomitant]
  11. MONTELUKAST [Concomitant]
     Active Substance: MONTELUKAST SODIUM
  12. ORTHO CYCLEN [Concomitant]
     Active Substance: ETHINYL ESTRADIOL\NORGESTIMATE
  13. PRADAXA [Concomitant]
     Active Substance: DABIGATRAN ETEXILATE MESYLATE
  14. SIROLIMUS. [Suspect]
     Active Substance: SIROLIMUS
     Indication: RENAL TRANSPLANT
     Route: 048
     Dates: start: 20160107, end: 201609
  15. FORTEO [Suspect]
     Active Substance: TERIPARATIDE
     Indication: OSTEOPOROSIS
     Route: 058
     Dates: start: 201610
  16. CARDIZEM [Concomitant]
     Active Substance: DILTIAZEM HYDROCHLORIDE
  17. FUROSEMIDE. [Concomitant]
     Active Substance: FUROSEMIDE
  18. BETHANECHOL [Concomitant]
     Active Substance: BETHANECHOL
  19. COSOPT PF [Concomitant]
     Active Substance: DORZOLAMIDE HYDROCHLORIDE\TIMOLOL MALEATE
  20. LORTAB [Concomitant]
     Active Substance: ACETAMINOPHEN\HYDROCODONE BITARTRATE
  21. MOXIFLOXACIN. [Concomitant]
     Active Substance: MOXIFLOXACIN
  22. TRANSDERM SC [Concomitant]
  23. TYLENOL [Concomitant]
     Active Substance: ACETAMINOPHEN
  24. ARANESP [Concomitant]
     Active Substance: DARBEPOETIN ALFA
  25. ATORVASTATIN [Concomitant]
     Active Substance: ATORVASTATIN
  26. POT CHLORIDE [Concomitant]
     Active Substance: POTASSIUM CHLORIDE
  27. SPIRONOLACT [Concomitant]
     Active Substance: SPIRONOLACTONE
  28. GLUCOS/CHOND [Concomitant]
  29. LEVOTHYROXIN [Concomitant]
     Active Substance: LEVOTHYROXINE
  30. OMEPRAZOLE. [Concomitant]
     Active Substance: OMEPRAZOLE
  31. PLAQUENIL [Concomitant]
     Active Substance: HYDROXYCHLOROQUINE SULFATE
  32. PREDNISONE. [Concomitant]
     Active Substance: PREDNISONE
  33. SPIRIVA AER [Concomitant]
  34. TACROLIMUS 1 MG CAP [Suspect]
     Active Substance: TACROLIMUS
     Indication: RENAL TRANSPLANT
     Route: 048
     Dates: start: 20160107
  35. MYCOPHENOLIC 180 DR TAB [Suspect]
     Active Substance: MYCOPHENOLIC ACID
     Indication: RENAL TRANSPLANT
     Route: 048
     Dates: start: 20160107
  36. ASPIRIN. [Concomitant]
     Active Substance: ASPIRIN
  37. LINZESS [Concomitant]
     Active Substance: LINACLOTIDE
  38. METHYLPHENID [Concomitant]
     Active Substance: METHYLPHENIDATE
  39. MONTOPROL [Concomitant]
  40. MORPHINE [Concomitant]
     Active Substance: MORPHINE
  41. ONDANSETRON [Concomitant]
     Active Substance: ONDANSETRON

REACTIONS (1)
  - Therapy cessation [None]

NARRATIVE: CASE EVENT DATE: 2018
